FAERS Safety Report 4639897-9 (Version None)
Quarter: 2005Q2

REPORT INFORMATION
  Report Type: 
  Country: None (occurrence: None)
  Receive Date: 20050418
  Receipt Date: 20050407
  Transmission Date: 20051028
  Serious: Yes (Hospitalization)
  Sender: FDA-Public Use
  Company Number: 2005056051

PATIENT
  Age: 31 Year
  Sex: Male
  Weight: 64 kg

DRUGS (10)
  1. XANAX [Suspect]
     Indication: ILL-DEFINED DISORDER
     Dosage: 2 MG (0.5 MG, 4 IN 1 D), ORAL
     Route: 048
     Dates: start: 20041116, end: 20041116
  2. NADROPARIN CALCIUM (NADROPARIN CALCIUM) [Suspect]
     Indication: ILL-DEFINED DISORDER
     Dosage: 1 DOSAGE FORM (1 IN 1 D), SUBCUTANEOUS
     Route: 058
     Dates: start: 20041117, end: 20041119
  3. CLOZAPINE [Suspect]
     Indication: ILL-DEFINED DISORDER
     Dosage: 150 MG (25 MG, 6 IN 1 D), ORAL
     Route: 048
     Dates: start: 20041117, end: 20050218
  4. LANSOPRAZOLE [Suspect]
     Indication: ILL-DEFINED DISORDER
     Dosage: 1 DOSAGE FORM (1 IN 1 D), ORAL
     Route: 048
     Dates: start: 20041117, end: 20041125
  5. DOMPERIDONE       (DOMPERIDONE) [Suspect]
     Indication: ILL-DEFINED DISORDER
     Dosage: 60 MG (10 MG, 6 IN 1 D), ORAL
     Route: 048
     Dates: start: 20041117, end: 20041125
  6. CLONAZEPAM [Suspect]
     Indication: ILL-DEFINED DISORDER
     Dosage: 2.5 MG/ML, ORAL
     Route: 048
     Dates: start: 20041117, end: 20050110
  7. GAVISCON [Concomitant]
  8. CLORAZEPATE DIPOTASSIUM [Concomitant]
  9. MACROGOL (MACROGOL) [Concomitant]
  10. SALACTOL (LACTIC ACID) [Concomitant]

REACTIONS (2)
  - INFLUENZA [None]
  - LEUKOCYTOSIS [None]
